FAERS Safety Report 22625518 (Version 3)
Quarter: 2024Q1

REPORT INFORMATION
  Report Type: Spontaneous
  Country: US (occurrence: US)
  Receive Date: 20230621
  Receipt Date: 20240220
  Transmission Date: 20240409
  Serious: No
  Sender: FDA-Public Use
  Company Number: US-PFIZER INC-202300223218

PATIENT
  Age: 47 Year
  Sex: Female
  Weight: 72.57 kg

DRUGS (2)
  1. OXBRYTA [Suspect]
     Active Substance: VOXELOTOR
     Indication: Sickle cell anaemia
     Dosage: 3 DF (3 TABLETS)
     Dates: start: 202304
  2. OXBRYTA [Suspect]
     Active Substance: VOXELOTOR
     Dosage: 1000 MG, 1X/DAY
     Route: 048

REACTIONS (6)
  - Abdominal discomfort [Unknown]
  - Hepatic enzyme increased [Unknown]
  - Diarrhoea [Recovering/Resolving]
  - Epigastric discomfort [Unknown]
  - Flatulence [Unknown]
  - Product dose omission issue [Unknown]
